FAERS Safety Report 5892960-7 (Version None)
Quarter: 2008Q3

REPORT INFORMATION
  Report Type: 
  Country: None (occurrence: None)
  Receive Date: 20080919
  Receipt Date: 20080905
  Transmission Date: 20090109
  Serious: Yes (Other)
  Sender: FDA-Public Use
  Company Number: 1000000966

PATIENT
  Age: 43 Year
  Sex: Female
  Weight: 102 kg

DRUGS (3)
  1. ESCITALOPRAM [Suspect]
     Indication: DEPRESSION
     Dosage: 40 MG (40 MG, 1 IN 1 D), ORAL
     Route: 048
     Dates: start: 20071117
  2. CHAMPIX (TABLETS) [Suspect]
     Indication: SMOKING CESSATION THERAPY
     Dosage: (2 IN 1 D), ORAL
     Route: 048
     Dates: start: 20080430, end: 20080803
  3. CHAMPIX (TABLETS) [Suspect]
     Indication: SMOKING CESSATION THERAPY
     Dosage: (1 IN 1 D), ORAL
     Route: 048
     Dates: start: 20080101

REACTIONS (2)
  - DEPRESSION [None]
  - DRUG INTERACTION [None]
